FAERS Safety Report 5352487-8 (Version None)
Quarter: 2007Q2

REPORT INFORMATION
  Report Type: 
  Country: None (occurrence: None)
  Receive Date: 20070611
  Receipt Date: 20070604
  Transmission Date: 20071010
  Serious: Yes (Hospitalization, Disabling, Other)
  Sender: FDA-Public Use
  Company Number: B0474423A

PATIENT
  Age: 88 Year
  Sex: Female

DRUGS (8)
  1. RANITIDINE [Suspect]
     Dosage: 150MG TWICE PER DAY
     Route: 048
     Dates: start: 20070327, end: 20070410
  2. GABAPENTIN [Suspect]
     Route: 048
     Dates: start: 20060906, end: 20070413
  3. BENDROFLUMETHIAZIDE [Concomitant]
  4. DICLOFENAC [Concomitant]
  5. DOMPERIDONE [Concomitant]
  6. LEVOTHYROXINE SODIUM [Concomitant]
  7. MOVICOL [Concomitant]
  8. OXYCONTIN [Concomitant]

REACTIONS (3)
  - CEREBELLAR ATAXIA [None]
  - MANIA [None]
  - PARANOIA [None]
